FAERS Safety Report 15369020 (Version 1)
Quarter: 2018Q3

REPORT INFORMATION
  Report Type: Report from Study
  Country: US (occurrence: US)
  Receive Date: 20180911
  Receipt Date: 20180911
  Transmission Date: 20181010
  Serious: Yes (Hospitalization)
  Sender: FDA-Public Use
  Company Number: US-B.I. PHARMACEUTICALS,INC./RIDGEFIELD-2018-BI-000726

PATIENT
  Age: 82 Year
  Sex: Male

DRUGS (1)
  1. OFEV [Suspect]
     Active Substance: NINTEDANIB
     Indication: IDIOPATHIC PULMONARY FIBROSIS
     Route: 048
     Dates: start: 20180104, end: 20180524

REACTIONS (11)
  - Pollakiuria [Unknown]
  - Cough [Unknown]
  - Abdominal pain upper [Unknown]
  - Decreased appetite [Unknown]
  - Gastric disorder [Unknown]
  - Ulcer [Recovered/Resolved]
  - Abdominal pain upper [Unknown]
  - Dyspnoea [Unknown]
  - Productive cough [Unknown]
  - Constipation [Unknown]
  - Insomnia [Unknown]

NARRATIVE: CASE EVENT DATE: 20180501
